FAERS Safety Report 19441390 (Version 1)
Quarter: 2021Q2

REPORT INFORMATION
  Report Type: Spontaneous
  Country: US (occurrence: US)
  Receive Date: 20210615
  Receipt Date: 20210615
  Transmission Date: 20210717
  Serious: Yes (Other)
  Sender: FDA-Public Use
  Company Number: None

PATIENT
  Age: 37 Year
  Sex: Female
  Weight: 59.4 kg

DRUGS (2)
  1. LEVO [Concomitant]
     Active Substance: LEVOBUPIVACAINE
  2. MIXHERS DAILY [Suspect]
     Active Substance: HERBALS
     Indication: HORMONE LEVEL ABNORMAL
     Dosage: ?          QUANTITY:1 1;?
     Route: 048

REACTIONS (4)
  - Paraesthesia [None]
  - Headache [None]
  - Blood pressure decreased [None]
  - Hypoaesthesia [None]

NARRATIVE: CASE EVENT DATE: 20210615
